FAERS Safety Report 21890546 (Version 1)
Quarter: 2023Q1

REPORT INFORMATION
  Report Type: Spontaneous
  Country: RU (occurrence: RU)
  Receive Date: 20230120
  Receipt Date: 20230120
  Transmission Date: 20230418
  Serious: Yes (Hospitalization)
  Sender: FDA-Public Use
  Company Number: RU-MYLANLABS-2023M1007209

PATIENT
  Age: 64 Year
  Sex: Male

DRUGS (12)
  1. ATORVASTATIN [Suspect]
     Active Substance: ATORVASTATIN
     Indication: Acute myocardial infarction
     Dosage: 80 MILLIGRAM
     Route: 065
     Dates: start: 2022
  2. ATORVASTATIN [Suspect]
     Active Substance: ATORVASTATIN
     Indication: Cardiogenic shock
  3. OMEPRAZOLE [Suspect]
     Active Substance: OMEPRAZOLE
     Indication: Acute myocardial infarction
     Dosage: 20 MILLIGRAM
     Route: 065
     Dates: start: 2022
  4. OMEPRAZOLE [Suspect]
     Active Substance: OMEPRAZOLE
     Indication: Cardiogenic shock
  5. BISOPROLOL [Suspect]
     Active Substance: BISOPROLOL
     Indication: Acute myocardial infarction
     Dosage: 1.25 MILLIGRAM
     Route: 065
     Dates: start: 2022
  6. BISOPROLOL [Suspect]
     Active Substance: BISOPROLOL
     Indication: Cardiogenic shock
  7. ASPIRIN [Suspect]
     Active Substance: ASPIRIN
     Indication: Acute myocardial infarction
     Dosage: 75 MILLIGRAM
     Route: 065
     Dates: start: 2022
  8. ASPIRIN [Suspect]
     Active Substance: ASPIRIN
     Indication: Cardiogenic shock
  9. AMIODARONE [Suspect]
     Active Substance: AMIODARONE
     Indication: Acute myocardial infarction
     Dosage: 600 MILLIGRAM
     Route: 065
     Dates: start: 2022
  10. AMIODARONE [Suspect]
     Active Substance: AMIODARONE
     Indication: Cardiogenic shock
  11. NADROPARIN CALCIUM [Suspect]
     Active Substance: NADROPARIN CALCIUM
     Indication: Acute myocardial infarction
     Dosage: 1200 MILLIGRAM, QD
     Route: 065
     Dates: start: 2022
  12. NADROPARIN CALCIUM [Suspect]
     Active Substance: NADROPARIN CALCIUM
     Indication: Cardiogenic shock

REACTIONS (1)
  - Drug ineffective [Unknown]

NARRATIVE: CASE EVENT DATE: 20220101
